FAERS Safety Report 21391048 (Version 1)
Quarter: 2022Q3

REPORT INFORMATION
  Report Type: Spontaneous
  Country: EG (occurrence: EG)
  Receive Date: 20220929
  Receipt Date: 20220929
  Transmission Date: 20221027
  Serious: Yes (Hospitalization, Other)
  Sender: FDA-Public Use
  Company Number: EG-NOVOPROD-961351

PATIENT
  Age: 30 Year
  Sex: Male
  Weight: 60 kg

DRUGS (5)
  1. MEGAMOX [AMOXICILLIN SODIUM;CLAVULANATE POTASSIUM] [Concomitant]
     Indication: Antibiotic therapy
     Dosage: 2 TABLETS PER DAY AFTER LUNCH , DINNER
     Route: 048
  2. NOVORAPID [Suspect]
     Active Substance: INSULIN ASPART
     Indication: Type 2 diabetes mellitus
     Dosage: 33 IU, QD
     Route: 058
  3. CATAFLAM [DICLOFENAC DIETHYLAMINE] [Concomitant]
     Indication: Analgesic intervention supportive therapy
     Dosage: 3 TIMES AT DAY
     Route: 048
  4. TRESIBA [Suspect]
     Active Substance: INSULIN DEGLUDEC
     Indication: Type 2 diabetes mellitus
     Dosage: 25 IU, QD
     Route: 058
  5. KAPRON [CIPROFLOXACIN HYDROCHLORIDE] [Concomitant]
     Indication: Anticoagulant therapy
     Dosage: 3 TIMES PER DAY
     Route: 048

REACTIONS (4)
  - Adenoiditis [Not Recovered/Not Resolved]
  - Condition aggravated [Not Recovered/Not Resolved]
  - Chondropathy [Not Recovered/Not Resolved]
  - Condition aggravated [Not Recovered/Not Resolved]
